FAERS Safety Report 9232860 (Version 1)
Quarter: 2013Q1

REPORT INFORMATION
  Report Type: Spontaneous
  Country: US (occurrence: None)
  Receive Date: 20121031
  Receipt Date: 20121031
  Transmission Date: 20140127
  Serious: No
  Sender: FDA-Public Use
  Company Number: PHEH2012US015329

PATIENT
  Age: 40 Year
  Sex: Male
  Weight: 111.1 kg

DRUGS (3)
  1. GILENYA (FTY) CAPSULE, 0.5MG [Suspect]
     Indication: RELAPSING-REMITTING MULTIPLE SCLEROSIS
     Route: 048
     Dates: start: 20120705, end: 20120721
  2. PAXIL (PAROXETINE HYDROCHLORIDE) [Concomitant]
  3. NEURONTIN (GABAPENTIN) [Concomitant]

REACTIONS (9)
  - Depression [None]
  - Photophobia [None]
  - Chills [None]
  - Chest pain [None]
  - Pain in extremity [None]
  - Burning sensation [None]
  - Migraine [None]
  - Headache [None]
  - Suicidal ideation [None]
